FAERS Safety Report 17327999 (Version 3)
Quarter: 2020Q1

REPORT INFORMATION
  Report Type: Spontaneous
  Country: PL (occurrence: PL)
  Receive Date: 20200127
  Receipt Date: 20200309
  Transmission Date: 20200409
  Serious: Yes (Hospitalization, Other)
  Sender: FDA-Public Use
  Company Number: PL-MYLANLABS-2020M1009700

PATIENT
  Age: 80 Year
  Sex: Female

DRUGS (5)
  1. QUETIAPINE. [Suspect]
     Active Substance: QUETIAPINE
     Indication: SLEEP DISORDER
     Dosage: 25 MILLIGRAM, QD(25 MG, PER DAY, IN THE EVENING )
     Route: 065
  2. TIAPRIDE [Concomitant]
     Active Substance: TIAPRIDE
     Indication: DEMENTIA
     Dosage: 25 MILLIGRAM, TID(DOSE: 3 X 25 MG  )
  3. TIAPRIDE [Concomitant]
     Active Substance: TIAPRIDE
     Dosage: UNK, Q8H(DOSE INCREASED: 25-25-100 MG )
  4. QUETIAPINE. [Suspect]
     Active Substance: QUETIAPINE
     Indication: AGITATION
     Dosage: 50 MILLIGRAM, QD(50 MG, PER DAY, IN THE EVENING)
     Route: 065
  5. QUETIAPINE. [Suspect]
     Active Substance: QUETIAPINE
     Dosage: 25 MILLIGRAM(TREATMENT REDUCED TO HALF)

REACTIONS (7)
  - Abdominal pain [Unknown]
  - Asthenia [Unknown]
  - Hypotension [Unknown]
  - Off label use [Unknown]
  - Confusional state [Unknown]
  - Extra dose administered [Unknown]
  - Constipation [Unknown]
